FAERS Safety Report 7111160-6 (Version None)
Quarter: 2010Q4

REPORT INFORMATION
  Report Type: 
  Country: None (occurrence: None)
  Receive Date: 20101118
  Receipt Date: 20091120
  Transmission Date: 20110411
  Serious: No
  Sender: FDA-Public Use
  Company Number: US-TEVA-215892USA

PATIENT
  Sex: Female
  Weight: 63.56 kg

DRUGS (2)
  1. ALBUTEROL SULFATE AUTOHALER [Suspect]
     Dosage: 2 PUFFS EVERY 6 HRS
     Route: 055
     Dates: start: 20091001
  2. DIAZEPAM [Concomitant]

REACTIONS (1)
  - AGEUSIA [None]
